FAERS Safety Report 21579582 (Version 1)
Quarter: 2022Q4

REPORT INFORMATION
  Report Type: Spontaneous
  Country: US (occurrence: None)
  Receive Date: 20221110
  Receipt Date: 20221110
  Transmission Date: 20230113
  Serious: Yes (Disabling)
  Sender: FDA-Public Use
  Company Number: None

PATIENT
  Age: 33 Year
  Sex: Male
  Weight: 58.5 kg

DRUGS (1)
  1. CIPROFLOXACIN [Suspect]
     Active Substance: CIPROFLOXACIN
     Indication: Prostatitis
     Dosage: OTHER QUANTITY : 1 TABLET(S);?FREQUENCY : TWICE A DAY;?
     Route: 048
     Dates: start: 20220827, end: 20220905

REACTIONS (10)
  - Therapy interrupted [None]
  - Disability [None]
  - Arthralgia [None]
  - Myalgia [None]
  - Neuropathy peripheral [None]
  - Tinnitus [None]
  - Insomnia [None]
  - Photopsia [None]
  - Tendon pain [None]
  - Tendonitis [None]

NARRATIVE: CASE EVENT DATE: 20220904
